FAERS Safety Report 13917688 (Version 2)
Quarter: 2017Q3

REPORT INFORMATION
  Report Type: Spontaneous
  Country: US (occurrence: US)
  Receive Date: 20170829
  Receipt Date: 20170908
  Transmission Date: 20171127
  Serious: Yes (Other)
  Sender: FDA-Public Use
  Company Number: US-ARALEZ PHARMACEUTICALS R+D INC.-2017-ARA-000375

PATIENT
  Age: 50 Year
  Sex: Male

DRUGS (2)
  1. TOPROL XL [Suspect]
     Active Substance: METOPROLOL SUCCINATE
     Indication: TACHYCARDIA
     Dosage: UNK
  2. TOPROL XL [Suspect]
     Active Substance: METOPROLOL SUCCINATE
     Dosage: 12.5 MG, BID
     Dates: start: 20170706

REACTIONS (5)
  - Off label use [Not Recovered/Not Resolved]
  - Atrial fibrillation [Recovered/Resolved]
  - Drug ineffective for unapproved indication [Recovered/Resolved]
  - Tachycardia [Recovered/Resolved]
  - Product quality issue [Recovered/Resolved]

NARRATIVE: CASE EVENT DATE: 20170704
